FAERS Safety Report 4441716-0 (Version None)
Quarter: 2004Q3

REPORT INFORMATION
  Report Type: 
  Country: None (occurrence: None)
  Receive Date: 20040907
  Receipt Date: 20040831
  Transmission Date: 20050211
  Serious: Yes (Death, Other)
  Sender: FDA-Public Use
  Company Number: PHBS2004PL11677

PATIENT
  Age: 39 Year
  Sex: Male

DRUGS (3)
  1. IMATINIB [Suspect]
     Indication: CHRONIC MYELOID LEUKAEMIA
     Dosage: 400 MG/DAY
     Route: 048
  2. IMATINIB [Suspect]
     Dosage: 600 MG/DAY
     Route: 048
  3. IMATINIB [Suspect]
     Dosage: 800 MG/DAY
     Route: 048

REACTIONS (4)
  - BLAST CRISIS IN MYELOGENOUS LEUKAEMIA [None]
  - CHROMOSOME ANALYSIS ABNORMAL [None]
  - DISEASE PROGRESSION [None]
  - DRUG RESISTANCE [None]
